FAERS Safety Report 8932601 (Version 1)
Quarter: 2012Q4

REPORT INFORMATION
  Report Type: 
  Country: GB (occurrence: None)
  Receive Date: 20121119
  Receipt Date: 20121119
  Transmission Date: 20130627
  Serious: Yes (Life-Threatening, Hospitalization, Other)
  Sender: FDA-Public Use
  Company Number: 1481613

PATIENT
  Age: 63 Year
  Sex: Male
  Weight: 87.6 kg

DRUGS (11)
  1. VINCRISTINE SULFATE [Suspect]
     Indication: NON-HODGKIN^S LYMPHOMA
     Dosage: 3 week, intravenous (not otherwise specified)
     Route: 042
     Dates: start: 20120105
  2. (INVESTIGATIONAL DRUG) [Suspect]
     Indication: NON-HODGKIN^S LYMPHOMA
     Dosage: , 3 week (not otherwise specified)
     Route: 042
     Dates: start: 20120104
  3. CYCLOPHOSPHAMIDE [Suspect]
     Indication: NON-HODGKIN^S LYMPHOMA
     Dosage: , 3 week (not otherwise specified)
     Route: 042
  4. PREDNISONE [Suspect]
     Indication: NON-HODGKIN^S LYMPHOMA
     Dosage: , 3 week (not otherwise specified)
     Route: 048
  5. (METFORMIN} [Concomitant]
  6. (CALCIPOTROL) [Concomitant]
  7. PIOGLITAZONE HYDROCHLORIDE [Concomitant]
  8. HYDROXOCOBALAMIN [Concomitant]
  9. GLICLAZIDE [Concomitant]
  10. (SENA)  /001427.01/} [Concomitant]
  11. LACTULOSE [Concomitant]

REACTIONS (2)
  - Neutropenia [None]
  - Haematotoxicity [None]
